FAERS Safety Report 5821894-9 (Version None)
Quarter: 2008Q3

REPORT INFORMATION
  Report Type: 
  Country: None (occurrence: None)
  Receive Date: 20080724
  Receipt Date: 20080717
  Transmission Date: 20090109
  Serious: Yes (Hospitalization)
  Sender: FDA-Public Use
  Company Number: US-LLY01-US200605005689

PATIENT
  Sex: Female
  Weight: 61.678 kg

DRUGS (11)
  1. BYETTA [Suspect]
     Indication: TYPE 2 DIABETES MELLITUS
     Dosage: 5 UG, 2/D
     Route: 058
     Dates: start: 20050520
  2. METFORMIN [Concomitant]
     Dosage: UNK, UNK
     Dates: start: 20050101
  3. DILTIAZEM HCL [Concomitant]
  4. AGGRENOX [Concomitant]
  5. FOLIC ACID [Concomitant]
  6. DILANTIN [Concomitant]
  7. SYNTHROID [Concomitant]
  8. ALTACE [Concomitant]
  9. SIMVASTATIN [Concomitant]
  10. EZETIMIBE [Concomitant]
  11. ACTOS [Concomitant]

REACTIONS (15)
  - ABDOMINAL DISTENSION [None]
  - ABDOMINAL PAIN UPPER [None]
  - BLOOD PRESSURE DECREASED [None]
  - CONSTIPATION [None]
  - DECREASED APPETITE [None]
  - DEHYDRATION [None]
  - EARLY SATIETY [None]
  - FATIGUE [None]
  - GASTRIC DISORDER [None]
  - NAUSEA [None]
  - PANCREATIC DISORDER [None]
  - RENAL DISORDER [None]
  - VOMITING [None]
  - WEIGHT DECREASED [None]
  - WEIGHT INCREASED [None]
